FAERS Safety Report 25315115 (Version 2)
Quarter: 2025Q2

REPORT INFORMATION
  Report Type: Spontaneous
  Country: CH (occurrence: CH)
  Receive Date: 20250514
  Receipt Date: 20250523
  Transmission Date: 20250717
  Serious: Yes (Other)
  Sender: MERCK SHARP & DOHME LLC
  Company Number: CH-009507513-2284506

PATIENT
  Age: 51 Year
  Weight: 25 kg

DRUGS (7)
  1. LETERMOVIR [Suspect]
     Active Substance: LETERMOVIR
     Dosage: 5 MG/KG/DAY
     Route: 048
     Dates: start: 2025
  2. BASILIXIMAB [Concomitant]
     Active Substance: BASILIXIMAB
     Indication: Immunosuppression
     Dates: start: 2025
  3. TACROLIMUS [Concomitant]
     Active Substance: TACROLIMUS
     Indication: Immunosuppression
     Dates: start: 2025
  4. MYCOPHENOLIC ACID [Concomitant]
     Active Substance: MYCOPHENOLIC ACID
     Indication: Immunosuppression
     Dates: start: 2025
  5. PREDNISONE [Concomitant]
     Active Substance: PREDNISONE
     Indication: Immunosuppression
     Dates: start: 2025
  6. LETERMOVIR [Suspect]
     Active Substance: LETERMOVIR
     Dosage: 10 MG/KG/DAY
     Route: 042
     Dates: start: 2025, end: 2025
  7. LETERMOVIR [Suspect]
     Active Substance: LETERMOVIR
     Route: 042
     Dates: start: 2025, end: 2025

REACTIONS (3)
  - Delayed graft function [Unknown]
  - Off label use [Unknown]
  - Oesophagitis [Unknown]
